FAERS Safety Report 4299658-X (Version None)
Quarter: 2004Q1

REPORT INFORMATION
  Report Type: 
  Country: None (occurrence: None)
  Receive Date: 20040219
  Receipt Date: 20030514
  Transmission Date: 20041129
  Serious: Yes (Other)
  Sender: FDA-Public Use
  Company Number: PHNR2003AU00888

PATIENT
  Age: 35 Year
  Sex: Female

DRUGS (3)
  1. ZELMAC [Suspect]
     Indication: IRRITABLE BOWEL SYNDROME
     Dosage: 6 MG, BID
     Route: 048
     Dates: start: 20030129, end: 20030512
  2. LAMISIL [Suspect]
     Indication: NAIL TINEA
     Dosage: 250 MG, QD
     Route: 048
     Dates: start: 20030408, end: 20030512
  3. PAROXETINE HCL [Concomitant]
     Indication: DEPRESSION
     Route: 048
     Dates: start: 20030201, end: 20030512

REACTIONS (15)
  - AGRANULOCYTOSIS [None]
  - ALLERGY TO ARTHROPOD BITE [None]
  - ARTHROPOD BITE [None]
  - BLISTER [None]
  - BLOOD IMMUNOGLOBULIN E INCREASED [None]
  - C-REACTIVE PROTEIN INCREASED [None]
  - CELLULITIS [None]
  - DRUG INTERACTION [None]
  - FACE OEDEMA [None]
  - METHICILLIN-RESISTANT STAPHYLOCOCCAL AUREUS TEST POSITIVE [None]
  - MOUTH ULCERATION [None]
  - NEUTROPHIL COUNT DECREASED [None]
  - RASH VESICULAR [None]
  - SWELLING [None]
  - WHITE BLOOD CELL COUNT DECREASED [None]
